FAERS Safety Report 5435993-7 (Version None)
Quarter: 2007Q3

REPORT INFORMATION
  Report Type: 
  Country: None (occurrence: None)
  Receive Date: 20070831
  Receipt Date: 20070829
  Transmission Date: 20080115
  Serious: Yes (Hospitalization)
  Sender: FDA-Public Use
  Company Number: A0676779A

PATIENT
  Age: 53 Year
  Sex: Male
  Weight: 61.4 kg

DRUGS (2)
  1. CARVEDILOL PHOSPHATE [Suspect]
     Indication: HYPERTENSION
     Route: 048
     Dates: start: 20070810
  2. LISINOPRIL [Suspect]
     Indication: HYPERTENSION
     Dosage: 10MG PER DAY
     Route: 048
     Dates: start: 20070810

REACTIONS (3)
  - OEDEMA PERIPHERAL [None]
  - SWELLING FACE [None]
  - URTICARIA [None]
